FAERS Safety Report 11518920 (Version 1)
Quarter: 2015Q3

REPORT INFORMATION
  Report Type: Spontaneous
  Country: US (occurrence: US)
  Receive Date: 20150917
  Receipt Date: 20150917
  Transmission Date: 20151125
  Serious: Yes (Other)
  Sender: FDA-Public Use
  Company Number: US-REGENERON PHARMACEUTICALS, INC.-2015-10920

PATIENT

DRUGS (5)
  1. EYLEA [Suspect]
     Active Substance: AFLIBERCEPT
     Indication: MACULAR DEGENERATION
     Dosage: UNK UNK, MONTHLY
     Route: 031
  2. AVASTIN [Suspect]
     Active Substance: BEVACIZUMAB
     Indication: AGE-RELATED MACULAR DEGENERATION
     Dosage: UNK, 1 INJECTION
     Route: 031
  3. CHOLESTEROL [Concomitant]
     Active Substance: CHOLESTEROL
  4. AREDSAN [Concomitant]
  5. WARFARIN [Concomitant]
     Active Substance: WARFARIN

REACTIONS (1)
  - Retinal oedema [Recovered/Resolved]
